FAERS Safety Report 7400573-0 (Version None)
Quarter: 2011Q2

REPORT INFORMATION
  Report Type: 
  Country: None (occurrence: None)
  Receive Date: 20110407
  Receipt Date: 20110406
  Transmission Date: 20111010
  Serious: Yes (Other)
  Sender: FDA-Public Use
  Company Number: JP-PFIZER INC-2010123378

PATIENT
  Age: 61 Year
  Sex: Male
  Weight: 47 kg

DRUGS (2)
  1. CHAMPIX [Suspect]
     Dosage: UNK
     Route: 048
     Dates: start: 20100729, end: 20101002
  2. NAUZELIN [Concomitant]
     Dosage: 3 MG, 3X/DAY
     Route: 048
     Dates: start: 20100729

REACTIONS (6)
  - PALPITATIONS [None]
  - VENTRICULAR EXTRASYSTOLES [None]
  - LIBIDO INCREASED [None]
  - BREAST MASS [None]
  - SINUS TACHYCARDIA [None]
  - TACHYCARDIA [None]
